FAERS Safety Report 7062882-7 (Version None)
Quarter: 2010Q4

REPORT INFORMATION
  Report Type: 
  Country: None (occurrence: None)
  Receive Date: 20101026
  Receipt Date: 20100216
  Transmission Date: 20110411
  Serious: No
  Sender: FDA-Public Use
  Company Number: US-PFIZER INC-2010022132

PATIENT
  Sex: Female
  Weight: 104 kg

DRUGS (7)
  1. LIPITOR [Suspect]
     Indication: BLOOD CHOLESTEROL ABNORMAL
     Dosage: 80 MG, 1X/DAY
     Dates: start: 20090101
  2. LIPITOR [Suspect]
     Indication: BLOOD TRIGLYCERIDES ABNORMAL
  3. LISINOPRIL [Concomitant]
     Indication: HYPERTENSION
     Dosage: 20 MG, 3X/DAY
  4. ATENOLOL [Concomitant]
     Dosage: 100 MG, 2X/DAY
  5. NORVASC [Concomitant]
     Dosage: 10 MG, 1X/DAY
  6. XANAX [Concomitant]
     Dosage: UNK
  7. GABAPENTIN [Concomitant]
     Indication: MUSCLE SPASMS
     Dosage: UNK

REACTIONS (2)
  - MALAISE [None]
  - MYALGIA [None]
